FAERS Safety Report 5327900-2 (Version None)
Quarter: 2007Q2

REPORT INFORMATION
  Report Type: 
  Country: None (occurrence: None)
  Receive Date: 20070517
  Receipt Date: 20070507
  Transmission Date: 20071010
  Serious: Yes (Hospitalization)
  Sender: FDA-Public Use
  Company Number: JP-PFIZER INC-2007033910

PATIENT
  Age: 65 Year
  Sex: Female

DRUGS (6)
  1. NORVASC [Suspect]
     Route: 048
     Dates: start: 20070424, end: 20070424
  2. CONIEL [Suspect]
     Indication: HYPERTENSION
     Route: 048
  3. CONIEL [Suspect]
     Dosage: DAILY DOSE:76MG-FREQ:ONCE
     Route: 048
     Dates: start: 20070424, end: 20070424
  4. NU LOTAN [Suspect]
     Indication: HYPERTENSION
     Route: 048
  5. NU LOTAN [Suspect]
     Dosage: DAILY DOSE:950MG-FREQ:ONCE
     Route: 048
     Dates: start: 20070424, end: 20070424
  6. LENDORMIN [Suspect]
     Route: 048
     Dates: start: 20070424, end: 20070424

REACTIONS (3)
  - ALTERED STATE OF CONSCIOUSNESS [None]
  - INTENTIONAL OVERDOSE [None]
  - SUICIDE ATTEMPT [None]
